FAERS Safety Report 7735525-4 (Version None)
Quarter: 2011Q3

REPORT INFORMATION
  Report Type: 
  Country: None (occurrence: None)
  Receive Date: 20110907
  Receipt Date: 20110829
  Transmission Date: 20111222
  Serious: Yes (Other)
  Sender: FDA-Public Use
  Company Number: US-ASTRAZENECA-2011SE51919

PATIENT
  Sex: Male

DRUGS (33)
  1. OLEPTRO [Concomitant]
     Route: 048
  2. CALAN [Concomitant]
     Route: 048
  3. DICLOXACILLIN [Concomitant]
  4. CIALIS [Concomitant]
     Dosage: 1 HR BEFORE INTERCOURSE
     Route: 048
  5. PREDNISONE [Concomitant]
  6. ALBEUTROL SULFATE [Concomitant]
     Dosage: 2.5 MG/3 ML 1 VIAL IN NEB MACHINE QID
  7. RANITIDINE HCL [Concomitant]
     Route: 048
  8. LASIX [Concomitant]
     Route: 048
  9. MIRALAX [Concomitant]
     Dosage: 12 GRAM PER DOSE
  10. NITROLINGUAL [Concomitant]
     Indication: CHEST PAIN
     Dosage: 1 SPRAY ONSET CHEST PAIN
  11. PULMICORT [Suspect]
     Dosage: 1 MG/2ML USE 6 TIMES DAILY
     Route: 055
  12. COMBIVENT [Concomitant]
     Dosage: 18-103MCG
  13. PRAVASTATIN [Concomitant]
     Route: 048
  14. SEPTRA [Concomitant]
     Dosage: 80-160 MG DAILY
     Route: 048
  15. COUMADIN [Concomitant]
     Dosage: 1- 1/2 ON FRIDAY ALL OTHER DAY 1 QD
     Route: 048
  16. ADVAIR DISKUS 100/50 [Concomitant]
     Dosage: 1 PUFF BID
  17. IAPRATROPIUM ALBUTEROL [Concomitant]
     Dosage: 0.5-2.5 MG/3ML  1 VIAL IN NEB MACHINE QID
  18. ROBAXIN [Concomitant]
     Dosage: 1-2 TID PRN
     Route: 048
  19. GABAPENTIN [Concomitant]
     Route: 048
  20. GLUCOPHAGE [Concomitant]
     Route: 048
  21. AZITHROMYCIN [Concomitant]
     Route: 048
  22. COZAAR [Concomitant]
     Route: 048
  23. SPIRIVA [Concomitant]
     Dosage: 18 MCG CAPSULE 1 PUFF DAILY
  24. FLEXERIL [Concomitant]
     Indication: MUSCLE SPASMS
     Route: 048
  25. LORTAB [Concomitant]
     Dosage: 7.5-500 MG QID PRN
     Route: 048
  26. NEXIUM [Suspect]
     Route: 048
  27. ZOLOFT [Concomitant]
     Indication: DEPRESSION
     Route: 048
  28. VIAGRA [Concomitant]
     Dosage: 1 HR BEFORE INTERCOURSE
     Route: 048
  29. OXYGEN [Concomitant]
     Dosage: USE 3 L PER MIN
  30. ZITHROMAX [Concomitant]
     Dosage: 2 FIRST DAY
  31. SINGULAIR [Concomitant]
     Route: 048
  32. LEVITRA [Concomitant]
     Dosage: 1 HR BEFORE INTERCOURSE
     Route: 048
  33. NITROGLYCERIN [Concomitant]
     Dosage: PRN

REACTIONS (20)
  - ATRIAL FIBRILLATION [None]
  - ASCITES [None]
  - ANXIETY [None]
  - CARDIAC FAILURE CONGESTIVE [None]
  - CHRONIC OBSTRUCTIVE PULMONARY DISEASE [None]
  - GASTROOESOPHAGEAL REFLUX DISEASE [None]
  - OSTEOARTHRITIS [None]
  - NEUROPATHY PERIPHERAL [None]
  - BRONCHITIS [None]
  - RHINITIS ALLERGIC [None]
  - FATIGUE [None]
  - HEPATIC CIRRHOSIS [None]
  - TYPE 2 DIABETES MELLITUS [None]
  - HYPERLIPIDAEMIA [None]
  - ESSENTIAL HYPERTENSION [None]
  - ROSACEA [None]
  - CORONARY ARTERY DISEASE [None]
  - PROSTATE CANCER [None]
  - ASTHMA [None]
  - IRRITABLE BOWEL SYNDROME [None]
